FAERS Safety Report 25329006 (Version 1)
Quarter: 2025Q2

REPORT INFORMATION
  Report Type: Report from Study
  Country: US (occurrence: US)
  Receive Date: 20250519
  Receipt Date: 20250519
  Transmission Date: 20250717
  Serious: Yes (Hospitalization)
  Sender: ARDELYX
  Company Number: US-ARDELYX-2024ARDX008824

PATIENT
  Sex: Male

DRUGS (4)
  1. IBSRELA [Suspect]
     Active Substance: TENAPANOR HYDROCHLORIDE
     Indication: Irritable bowel syndrome
     Route: 048
  2. IBSRELA [Suspect]
     Active Substance: TENAPANOR HYDROCHLORIDE
     Route: 048
     Dates: end: 202412
  3. BENEFIBER [Concomitant]
     Active Substance: STARCH, WHEAT
     Indication: Irritable bowel syndrome
     Route: 065
  4. SENNA [Concomitant]
     Active Substance: SENNOSIDES
     Indication: Irritable bowel syndrome
     Route: 065

REACTIONS (6)
  - Presyncope [Recovered/Resolved]
  - Hyponatraemia [Recovered/Resolved]
  - Blood pressure decreased [Unknown]
  - Muscle spasms [Recovered/Resolved]
  - Dizziness [Recovered/Resolved]
  - Diarrhoea [Unknown]

NARRATIVE: CASE EVENT DATE: 20240101
